FAERS Safety Report 10089533 (Version 1)
Quarter: 2014Q2

REPORT INFORMATION
  Report Type: Spontaneous
  Country: US (occurrence: None)
  Receive Date: 20140418
  Receipt Date: 20140418
  Transmission Date: 20141212
  Serious: Yes (Hospitalization)
  Sender: FDA-Public Use
  Company Number: None

PATIENT
  Age: 80 Year
  Sex: Male
  Weight: 73.8 kg

DRUGS (1)
  1. SERTRALINE [Suspect]
     Indication: DEPRESSION
     Route: 048
     Dates: start: 20140324, end: 20140409

REACTIONS (5)
  - Decreased appetite [None]
  - Asthenia [None]
  - Dehydration [None]
  - Blood creatine phosphokinase increased [None]
  - Myopathy [None]
